FAERS Safety Report 6867868-0 (Version None)
Quarter: 2010Q3

REPORT INFORMATION
  Report Type: 
  Country: None (occurrence: None)
  Receive Date: 20100722
  Receipt Date: 20080506
  Transmission Date: 20110219
  Serious: No
  Sender: FDA-Public Use
  Company Number: US-PFIZER INC-2008040267

PATIENT
  Sex: Male

DRUGS (1)
  1. CHANTIX [Suspect]
     Dates: start: 20080101, end: 20080201

REACTIONS (3)
  - GINGIVAL PAIN [None]
  - LOOSE TOOTH [None]
  - STOMATITIS [None]
